FAERS Safety Report 8590647-3 (Version None)
Quarter: 2012Q3

REPORT INFORMATION
  Report Type: 
  Country: None (occurrence: None)
  Receive Date: 20120813
  Receipt Date: 20120808
  Transmission Date: 20120928
  Serious: Yes (Other)
  Sender: FDA-Public Use
  Company Number: US-PFIZER INC-2012193758

PATIENT
  Age: 41 Year
  Sex: Female
  Weight: 87.075 kg

DRUGS (3)
  1. EFFEXOR [Suspect]
     Dosage: 150 MG, UNK
     Route: 048
     Dates: start: 20120801
  2. EFFEXOR [Suspect]
     Dosage: 225 MG, UNK
     Route: 048
     Dates: end: 20120801
  3. EFFEXOR [Suspect]
     Indication: DEPRESSION
     Dosage: UNK
     Route: 048

REACTIONS (4)
  - METRORRHAGIA [None]
  - INSOMNIA [None]
  - BLOOD PROLACTIN INCREASED [None]
  - LACTATION DISORDER [None]
